FAERS Safety Report 6683880-9 (Version None)
Quarter: 2010Q2

REPORT INFORMATION
  Report Type: 
  Country: None (occurrence: None)
  Receive Date: 20100416
  Receipt Date: 20100406
  Transmission Date: 20101027
  Serious: Yes (Other)
  Sender: FDA-Public Use
  Company Number: US-JNJFOC-20061004244

PATIENT
  Sex: Female
  Weight: 102.06 kg

DRUGS (6)
  1. RISPERDAL [Suspect]
     Indication: ANXIETY
  2. RISPERDAL [Suspect]
     Indication: SCHIZOPHRENIA
  3. RISPERDAL [Suspect]
     Indication: DEPRESSION
  4. TOPROL-XL [Concomitant]
     Indication: DRUG USE FOR UNKNOWN INDICATION
     Dosage: ONE HALF TABLET DAILY
     Route: 065
  5. ZOLOFT [Concomitant]
     Indication: DRUG USE FOR UNKNOWN INDICATION
     Route: 065
  6. TRILEPTAL [Concomitant]
     Indication: CONVULSION

REACTIONS (1)
  - DIABETES MELLITUS [None]
